FAERS Safety Report 8879850 (Version 1)
Quarter: 2012Q4

REPORT INFORMATION
  Report Type: Report from Study
  Country: CA (occurrence: CA)
  Receive Date: 20121101
  Receipt Date: 20121101
  Transmission Date: 20130627
  Serious: Yes (Other)
  Sender: FDA-Public Use
  Company Number: CA-JNJFOC-20121012688

PATIENT
  Age: 77 Year
  Sex: Female
  Weight: 37 kg

DRUGS (2)
  1. REMICADE [Suspect]
     Indication: COLITIS ULCERATIVE
     Route: 042
     Dates: start: 20121015
  2. REMICADE [Suspect]
     Indication: COLITIS ULCERATIVE
     Dosage: at 0, 2 weeks
     Route: 042
     Dates: start: 20121001

REACTIONS (4)
  - Pallor [Recovering/Resolving]
  - Pyrexia [Recovering/Resolving]
  - Infusion related reaction [Recovering/Resolving]
  - Chills [Recovering/Resolving]
